FAERS Safety Report 7345241-9 (Version None)
Quarter: 2011Q1

REPORT INFORMATION
  Report Type: 
  Country: None (occurrence: None)
  Receive Date: 20110310
  Receipt Date: 20110301
  Transmission Date: 20110831
  Serious: Yes (Other)
  Sender: FDA-Public Use
  Company Number: JP-ELI_LILLY_AND_COMPANY-JP201103000376

PATIENT
  Age: 76 Year
  Sex: Female

DRUGS (2)
  1. MEILAX [Concomitant]
  2. ZYPREXA [Suspect]
     Indication: SCHIZOPHRENIA
     Dosage: 2 MG, DAILY (1/D)
     Route: 048

REACTIONS (2)
  - PLATELET COUNT DECREASED [None]
  - CHEST DISCOMFORT [None]
